FAERS Safety Report 6819967-7 (Version None)
Quarter: 2010Q3

REPORT INFORMATION
  Report Type: 
  Country: None (occurrence: None)
  Receive Date: 20100707
  Receipt Date: 20100629
  Transmission Date: 20110219
  Serious: Yes (Death)
  Sender: FDA-Public Use
  Company Number: CO-ROCHE-712032

PATIENT
  Sex: Female

DRUGS (3)
  1. XELODA [Suspect]
     Indication: BREAST CANCER
     Dosage: FREQUENCY: EVERY DAY
     Route: 048
     Dates: start: 20091110, end: 20100325
  2. PREDNISOLONE [Concomitant]
     Dosage: FREQUENCY: EVERY DAY
     Route: 048
  3. MORPHINE [Concomitant]
     Indication: PAIN
     Dosage: DOSE: REPORTED AS DROPS, FREQUENCY: AS NEEDED
     Route: 048

REACTIONS (1)
  - MALIGNANT NEOPLASM PROGRESSION [None]
